FAERS Safety Report 5034468-7 (Version None)
Quarter: 2006Q2

REPORT INFORMATION
  Report Type: 
  Country: None (occurrence: None)
  Receive Date: 20060626
  Receipt Date: 20051201
  Transmission Date: 20061013
  Serious: Yes (Death, Life-Threatening, Hospitalization)
  Sender: FDA-Public Use
  Company Number: DE-SANOFI-SYNTHELABO-F01200502625

PATIENT
  Sex: Male
  Weight: 74 kg

DRUGS (10)
  1. LOW MOLECULAR WEIGHT HEPARIN [Concomitant]
     Dosage: UNK
     Route: 065
     Dates: end: 20051108
  2. PROTAPHAN [Concomitant]
  3. AMARYL [Concomitant]
  4. TRAMADOL HCL [Concomitant]
  5. NOVALGIN [Concomitant]
  6. DELIX [Concomitant]
  7. CONCOR [Concomitant]
  8. ACETYLSALICYLIC ACID SRT [Concomitant]
     Indication: PERIPHERAL ISCHAEMIA
     Dosage: 100 MG
     Route: 048
  9. LENDORMIN [Concomitant]
  10. CLOPIDOGREL [Suspect]
     Indication: PERIPHERAL ISCHAEMIA
     Route: 048
     Dates: start: 20051111

REACTIONS (11)
  - ABSCESS [None]
  - APHASIA [None]
  - ASPIRATION PLEURAL CAVITY [None]
  - EFFUSION [None]
  - HAEMATURIA [None]
  - OEDEMA PERIPHERAL [None]
  - PLEURAL EFFUSION [None]
  - PULMONARY EMBOLISM [None]
  - SEPSIS [None]
  - SUDDEN CARDIAC DEATH [None]
  - URINARY TRACT INFECTION [None]
